FAERS Safety Report 6059815-9 (Version None)
Quarter: 2009Q1

REPORT INFORMATION
  Report Type: 
  Country: None (occurrence: None)
  Receive Date: 20090130
  Receipt Date: 20080924
  Transmission Date: 20090719
  Serious: No
  Sender: FDA-Public Use
  Company Number: US-ABBOTT-08P-163-0478167-00

PATIENT
  Sex: Female

DRUGS (2)
  1. LUPRON DEPOT [Suspect]
     Indication: ENDOMETRIOSIS
     Route: 050
     Dates: start: 20080912, end: 20080912
  2. NORETHINDRONE ACETATE [Concomitant]
     Indication: ENDOMETRIOSIS
     Route: 048
     Dates: start: 20080912

REACTIONS (1)
  - HEADACHE [None]
